FAERS Safety Report 9372157 (Version 1)
Quarter: 2013Q2

REPORT INFORMATION
  Report Type: Report from Study
  Country: US (occurrence: US)
  Receive Date: 20130627
  Receipt Date: 20130627
  Transmission Date: 20140414
  Serious: Yes (Death)
  Sender: FDA-Public Use
  Company Number: US-MYLANLABS-2012S1016224

PATIENT
  Age: 66 Year
  Sex: Female

DRUGS (10)
  1. CLOZAPINE TABLETS [Suspect]
  2. FOSAMAX [Concomitant]
  3. ENABLEX [Concomitant]
  4. NORCO [Concomitant]
     Dosage: 5MG/325MG
  5. WELLBUTRIN [Concomitant]
  6. CELEXA [Concomitant]
  7. HALDOL [Concomitant]
  8. CLARITINE [Concomitant]
  9. CALCIUM [Concomitant]
  10. VITAMIN D [Concomitant]

REACTIONS (2)
  - Respiratory distress [Fatal]
  - Renal failure [Fatal]
